FAERS Safety Report 4307425-3 (Version None)
Quarter: 2004Q1

REPORT INFORMATION
  Report Type: 
  Country: None (occurrence: None)
  Receive Date: 20040226
  Receipt Date: 20040220
  Transmission Date: 20041129
  Serious: Yes (Life-Threatening, Hospitalization)
  Sender: FDA-Public Use
  Company Number: DK-JNJFOC-20040204752

PATIENT
  Age: 75 Year
  Sex: Male
  Weight: 88 kg

DRUGS (2)
  1. REMICADE [Suspect]
     Indication: CROHN'S DISEASE
     Dosage: SEE IMAGE
     Route: 042
     Dates: start: 20010101, end: 20010101
  2. REMICADE [Suspect]
     Indication: CROHN'S DISEASE
     Dosage: SEE IMAGE
     Route: 042
     Dates: start: 20040120, end: 20040203

REACTIONS (6)
  - ANAPHYLACTIC SHOCK [None]
  - BLOOD AMYLASE INCREASED [None]
  - NAUSEA [None]
  - PRURITUS [None]
  - RASH [None]
  - RESPIRATORY FAILURE [None]
